FAERS Safety Report 9804798 (Version 1)
Quarter: 2014Q1

REPORT INFORMATION
  Report Type: Spontaneous
  Country: US (occurrence: US)
  Receive Date: 20140108
  Receipt Date: 20140108
  Transmission Date: 20141002
  Serious: Yes (Death)
  Sender: FDA-Public Use
  Company Number: US-GILEAD-2014-0091550

PATIENT
  Sex: Male

DRUGS (6)
  1. LETAIRIS [Suspect]
     Indication: PULMONARY ARTERIAL HYPERTENSION
     Dosage: 10 MG, QD
     Route: 048
     Dates: start: 20100202, end: 20131212
  2. FUROSEMIDE [Concomitant]
     Indication: FLUID RETENTION
     Dosage: 20 MG, QD
     Route: 065
     Dates: start: 20130923, end: 20131212
  3. VESICARE [Concomitant]
     Indication: HYPERTONIC BLADDER
     Dosage: 5 MG, QD
     Route: 065
     Dates: start: 20130923, end: 20131212
  4. RAPAFLO [Concomitant]
     Indication: BENIGN PROSTATIC HYPERPLASIA
     Dosage: 8 MG, QD
     Route: 065
     Dates: start: 20131011, end: 20131202
  5. AVODART [Concomitant]
     Indication: BENIGN PROSTATIC HYPERPLASIA
     Dosage: 0.5 MG, QD
     Route: 065
     Dates: start: 20130922, end: 20131220
  6. DIGOXIN [Concomitant]
     Indication: CARDIAC FAILURE
     Route: 065
     Dates: start: 20130829, end: 20131220

REACTIONS (1)
  - Disease progression [Fatal]
